FAERS Safety Report 9997879 (Version 2)
Quarter: 2014Q2

REPORT INFORMATION
  Report Type: Spontaneous
  Country: FR (occurrence: FR)
  Receive Date: 20140311
  Receipt Date: 20140407
  Transmission Date: 20141212
  Serious: Yes (Hospitalization)
  Sender: FDA-Public Use
  Company Number: FR-PFIZER INC-2014064137

PATIENT
  Age: 22 Year
  Sex: Female

DRUGS (5)
  1. ZITHROMAX [Suspect]
     Indication: EYE INFECTION TOXOPLASMAL
     Dosage: UNK
     Route: 048
     Dates: start: 20140202, end: 20140217
  2. MALOCIDE [Suspect]
     Indication: EYE INFECTION TOXOPLASMAL
     Dosage: UNK
     Route: 048
     Dates: start: 20140203, end: 20140217
  3. DOLIPRANE [Concomitant]
     Dosage: UNK
     Dates: start: 20140213, end: 20140216
  4. INDOCOLLYRE [Concomitant]
     Indication: EYE INFECTION TOXOPLASMAL
     Dosage: UNK
     Dates: start: 20140202
  5. LEDERFOLIN [Concomitant]
     Indication: EYE INFECTION TOXOPLASMAL
     Dosage: UNK
     Dates: start: 20140203

REACTIONS (3)
  - Rash [Recovered/Resolved]
  - Hepatocellular injury [Recovering/Resolving]
  - Pancytopenia [Recovered/Resolved]
